FAERS Safety Report 14271448 (Version 3)
Quarter: 2017Q4

REPORT INFORMATION
  Report Type: Report from Study
  Country: US (occurrence: US)
  Receive Date: 20171211
  Receipt Date: 20171228
  Transmission Date: 20180321
  Serious: Yes (Hospitalization)
  Sender: FDA-Public Use
  Company Number: US-PFIZER INC-2017502054

PATIENT
  Age: 77 Year
  Sex: Male
  Weight: 92 kg

DRUGS (22)
  1. PREDNISONE. [Concomitant]
     Active Substance: PREDNISONE
     Dosage: 1 TAB, DAILY
     Route: 048
     Dates: start: 20171002
  2. SPIRIVA [Concomitant]
     Active Substance: TIOTROPIUM BROMIDE MONOHYDRATE
     Dosage: 1 CAPSULE, DAILY
     Route: 055
     Dates: start: 20170930
  3. CARBOPLATIN. [Suspect]
     Active Substance: CARBOPLATIN
     Indication: LUNG NEOPLASM MALIGNANT
     Dosage: 587 MG, SINGLE
     Route: 042
     Dates: start: 20171013, end: 20171013
  4. VITAMIN D3 [Concomitant]
     Active Substance: CHOLECALCIFEROL
     Dosage: 2000 IU, DAILY
     Route: 048
     Dates: start: 20170930
  5. PRILOSEC [Concomitant]
     Active Substance: OMEPRAZOLE MAGNESIUM
     Dosage: 20 MG, 2X/DAY
     Route: 048
     Dates: start: 20140522
  6. LOVASTATIN. [Concomitant]
     Active Substance: LOVASTATIN
     Dosage: 40 MG, DAILY
     Route: 048
     Dates: start: 20101224
  7. MYCOSTATIN [Concomitant]
     Active Substance: NYSTATIN
     Dosage: UNK UNK, 2X/DAY
     Route: 061
     Dates: start: 20170930
  8. CARAFATE [Concomitant]
     Active Substance: SUCRALFATE
     Dosage: 1 G, 2X/DAY
     Route: 048
     Dates: start: 20170930
  9. FLOVENT HFA [Concomitant]
     Active Substance: FLUTICASONE PROPIONATE
     Dosage: 110 MCG/ACTUATION AEROSOL 2 PUFFS  INHALED TWICE DAILY PRN
     Route: 055
     Dates: start: 20170930
  10. ALIMTA [Suspect]
     Active Substance: PEMETREXED DISODIUM
     Indication: LUNG NEOPLASM MALIGNANT
     Dosage: 1100 MG, SINGLE
     Route: 042
     Dates: start: 20171013, end: 20171013
  11. METOPROLOL TARTRATE. [Concomitant]
     Active Substance: METOPROLOL TARTRATE
     Dosage: 35 MG, 2X/DAY
     Route: 048
     Dates: start: 20170930
  12. VITAMIN B12 [Concomitant]
     Active Substance: CYANOCOBALAMIN
     Dosage: 1 TAB, DAILY
     Route: 048
     Dates: start: 20170930
  13. FRAGMIN [Suspect]
     Active Substance: DALTEPARIN SODIUM
     Indication: PULMONARY EMBOLISM
     Dosage: 18000 UNITS/0.72, DAILY
     Route: 058
     Dates: start: 20171002, end: 20171022
  14. ANTIVERT /00072802/ [Concomitant]
     Dosage: ONE-HALF OF 23 MG TABLET DAILY
     Route: 048
     Dates: start: 20170930
  15. CLARITIN-D NOS [Concomitant]
     Active Substance: LORATADINE\PSEUDOEPHEDRINE SULFATE
     Dosage: 10/240 MG TABLET, ONE TABLET DAILY
     Route: 048
     Dates: start: 20160802
  16. FINASTERIDE. [Concomitant]
     Active Substance: FINASTERIDE
     Dosage: 5 MG, DAILY
     Route: 048
     Dates: start: 20160802
  17. ALBUTEROL /00139501/ [Concomitant]
     Active Substance: ALBUTEROL
     Dosage: 2 PUFFS EVERY 4 HOURS PRN
     Route: 055
     Dates: start: 20160802
  18. LASIX [Concomitant]
     Active Substance: FUROSEMIDE
     Dosage: 1 TABLET DAILY
     Route: 048
     Dates: start: 20170930
  19. VITAMIN C [Concomitant]
     Active Substance: ASCORBIC ACID
     Dosage: 1000 MG, DAILY
     Route: 048
     Dates: start: 20170930
  20. ROXICODONE [Concomitant]
     Active Substance: OXYCODONE HYDROCHLORIDE
     Dosage: 5 MG, ONE TABLE TWICE DAILY PRN
     Route: 048
     Dates: start: 20170929
  21. ICAPS PLUS /07504101/ [Concomitant]
     Dosage: 1 TABLET DAILY
     Route: 048
     Dates: start: 20121115
  22. LAMOTRIGINE. [Concomitant]
     Active Substance: LAMOTRIGINE
     Dosage: 100 MG, 2X/DAY
     Route: 048
     Dates: start: 20101223

REACTIONS (2)
  - Skin infection [Recovered/Resolved]
  - Cough [Not Recovered/Not Resolved]

NARRATIVE: CASE EVENT DATE: 20171022
